FAERS Safety Report 10284238 (Version 2)
Quarter: 2014Q3

REPORT INFORMATION
  Report Type: Spontaneous
  Country: DZ (occurrence: DZ)
  Receive Date: 20140708
  Receipt Date: 20140715
  Transmission Date: 20150326
  Serious: Yes (Death)
  Sender: FDA-Public Use
  Company Number: DZ-SA-2014SA086885

PATIENT
  Age: 50 Year
  Sex: Female

DRUGS (2)
  1. TAXOTERE [Suspect]
     Active Substance: DOCETAXEL
     Indication: NEOPLASM
     Route: 042
     Dates: start: 20140615, end: 20140615
  2. ADRIAMYCIN [Concomitant]
     Active Substance: DOXORUBICIN HYDROCHLORIDE
     Indication: NEOPLASM
     Dates: start: 20140615

REACTIONS (6)
  - Skin discolouration [Unknown]
  - Thrombocytopenia [Fatal]
  - Neutropenia [Fatal]
  - Malaise [Unknown]
  - Mucosal inflammation [Unknown]
  - Aplasia [Unknown]
